FAERS Safety Report 6907104-X (Version None)
Quarter: 2010Q3

REPORT INFORMATION
  Report Type: 
  Country: None (occurrence: None)
  Receive Date: 20100804
  Receipt Date: 20090625
  Transmission Date: 20110219
  Serious: No
  Sender: FDA-Public Use
  Company Number: US-PFIZER INC-2009233116

PATIENT
  Age: 44 Year
  Sex: Female

DRUGS (3)
  1. NARDIL [Suspect]
     Indication: DEPRESSION
     Dosage: UNK
     Dates: start: 20090101
  2. NARDIL [Suspect]
     Indication: BIPOLAR DISORDER
  3. LITHIUM [Concomitant]

REACTIONS (1)
  - HEAD DISCOMFORT [None]
